FAERS Safety Report 10920783 (Version 2)
Quarter: 2015Q1

REPORT INFORMATION
  Report Type: Report from Study
  Country: DE (occurrence: DE)
  Receive Date: 20150317
  Receipt Date: 20150324
  Transmission Date: 20150721
  Serious: Yes (Other)
  Sender: FDA-Public Use
  Company Number: DE-BAYER-2015-035291

PATIENT
  Sex: Female

DRUGS (1)
  1. MIRENA [Suspect]
     Active Substance: LEVONORGESTREL

REACTIONS (5)
  - Uterine cyst [Recovered/Resolved]
  - Drug ineffective [None]
  - Breast discomfort [None]
  - Breast enlargement [None]
  - Pregnancy with contraceptive device [None]

NARRATIVE: CASE EVENT DATE: 2013
